FAERS Safety Report 7957227-1 (Version None)
Quarter: 2011Q4

REPORT INFORMATION
  Report Type: 
  Country: None (occurrence: None)
  Receive Date: 20111205
  Receipt Date: 20111130
  Transmission Date: 20120403
  Serious: Yes (Life-Threatening, Hospitalization, Other)
  Sender: FDA-Public Use
  Company Number: US-ASTRAZENECA-2011SE72771

PATIENT
  Age: 60 Year
  Sex: Female

DRUGS (2)
  1. CRESTOR [Suspect]
     Route: 048
  2. TOPROL-XL [Suspect]
     Route: 048

REACTIONS (9)
  - FALL [None]
  - PAIN [None]
  - SKULL FRACTURE [None]
  - DIABETES MELLITUS [None]
  - AMNESIA [None]
  - APPARENT DEATH [None]
  - CARDIAC DISORDER [None]
  - CHEST PAIN [None]
  - FOOT FRACTURE [None]
